FAERS Safety Report 18622991 (Version 1)
Quarter: 2020Q4

REPORT INFORMATION
  Report Type: Report from Study
  Country: US (occurrence: US)
  Receive Date: 20201216
  Receipt Date: 20201216
  Transmission Date: 20210114
  Serious: Yes (Death, Life-Threatening, Other)
  Sender: FDA-Public Use
  Company Number: NVSC2020US187175

PATIENT
  Age: 22 Year
  Sex: Male

DRUGS (3)
  1. FLUDARABINE [Concomitant]
     Active Substance: FLUDARABINE PHOSPHATE
     Indication: CHEMOTHERAPY
     Dosage: UNK
     Route: 065
  2. KYMRIAH [Suspect]
     Active Substance: TISAGENLECLEUCEL
     Indication: DIFFUSE LARGE B-CELL LYMPHOMA
     Dosage: UNK
     Route: 065
     Dates: start: 20190528
  3. CYCLOPHOSPHAMIDE. [Concomitant]
     Active Substance: CYCLOPHOSPHAMIDE
     Indication: CHEMOTHERAPY
     Dosage: UNK
     Route: 065

REACTIONS (7)
  - Diffuse large B-cell lymphoma recurrent [Fatal]
  - Neutropenia [Recovered/Resolved]
  - Malignant neoplasm progression [Fatal]
  - Platelet count decreased [Recovered/Resolved]
  - Cytopenia [Unknown]
  - Diffuse large B-cell lymphoma [Fatal]
  - Respiratory failure [Unknown]
